FAERS Safety Report 18148516 (Version 2)
Quarter: 2021Q3

REPORT INFORMATION
  Report Type: Spontaneous
  Country: US (occurrence: US)
  Receive Date: 20200814
  Receipt Date: 20210707
  Transmission Date: 20211014
  Serious: No
  Sender: FDA-Public Use
  Company Number: US-LUNDBECK-DKLU3019219

PATIENT
  Age: 9 Year
  Sex: Male
  Weight: 27 kg

DRUGS (1)
  1. SABRIL [Suspect]
     Active Substance: VIGABATRIN
     Indication: EPILEPSY
     Route: 048

REACTIONS (1)
  - Prescription drug used without a prescription [Unknown]
